FAERS Safety Report 7602734-4 (Version None)
Quarter: 2011Q3

REPORT INFORMATION
  Report Type: 
  Country: None (occurrence: None)
  Receive Date: 20110711
  Receipt Date: 20110711
  Transmission Date: 20111222
  Serious: Yes (Life-Threatening, Hospitalization, Other)
  Sender: FDA-Public Use
  Company Number: None

PATIENT
  Age: 31 Year
  Sex: Female
  Weight: 95.2554 kg

DRUGS (1)
  1. NORTEX (NECON GENERIC) 1/35 BARR LABORATORIES [Suspect]
     Indication: CONTRACEPTION
     Dosage: 1/35 ONE DAILY ORALLY
     Route: 048
     Dates: start: 20050101

REACTIONS (1)
  - SUPERIOR SAGITTAL SINUS THROMBOSIS [None]
